FAERS Safety Report 10125791 (Version 1)
Quarter: 2014Q2

REPORT INFORMATION
  Report Type: Spontaneous
  Country: KR (occurrence: KR)
  Receive Date: 20140425
  Receipt Date: 20140425
  Transmission Date: 20141212
  Serious: Yes (Other)
  Sender: FDA-Public Use
  Company Number: KR-WATSON-2014-07808

PATIENT
  Age: 68 Year
  Sex: Male
  Weight: 65 kg

DRUGS (11)
  1. VANCOMYCIN (UNKNOWN) [Suspect]
     Indication: PNEUMONIA NECROTISING
     Dosage: UNK
     Route: 065
  2. SODIUM VALPROATE (UNKNOWN) [Interacting]
     Indication: TONIC CLONIC MOVEMENTS
     Dosage: 750 MG, BID, EVERY 12 HOURS
     Route: 042
  3. SODIUM VALPROATE (UNKNOWN) [Interacting]
     Indication: CONVULSION
  4. ERTAPENEM [Interacting]
     Indication: PNEUMONIA NECROTISING
     Dosage: 1000 MG, DAILY
     Route: 042
  5. CARBAMAZEPINE [Concomitant]
     Indication: EPILEPSY
     Dosage: 200 MG, BID
     Route: 065
  6. FERROUS SULPHATE                   /00023503/ [Concomitant]
     Indication: PRODUCT USED FOR UNKNOWN INDICATION
     Dosage: 325 MG, DAILY
     Route: 065
  7. LOVASTATIN [Concomitant]
     Indication: PRODUCT USED FOR UNKNOWN INDICATION
     Dosage: 20 MG, QPM
     Route: 065
  8. DOCUSATE [Concomitant]
     Indication: PRODUCT USED FOR UNKNOWN INDICATION
     Dosage: 100 MG, BID
     Route: 048
  9. ACETAMINOPHEN [Concomitant]
     Indication: PRODUCT USED FOR UNKNOWN INDICATION
     Dosage: 625 MG, Q4H, PRN
     Route: 065
  10. INSULIN [Concomitant]
     Indication: PRODUCT USED FOR UNKNOWN INDICATION
     Dosage: UNK, EVERY 6 HOURS
     Route: 058
  11. LORAZEPAM [Concomitant]
     Indication: CONVULSION
     Dosage: 0.5 MG/H, IN 5%DEXTROSE IN WATER
     Route: 042

REACTIONS (7)
  - Renal failure [Unknown]
  - Thrombocytopenia [Unknown]
  - White blood cell count decreased [Unknown]
  - Rash [Unknown]
  - Convulsion [Recovered/Resolved]
  - Anticonvulsant drug level decreased [Recovered/Resolved]
  - Drug interaction [Recovered/Resolved]
